FAERS Safety Report 7518691-5 (Version None)
Quarter: 2011Q2

REPORT INFORMATION
  Report Type: 
  Country: None (occurrence: None)
  Receive Date: 20110523
  Receipt Date: 20110509
  Transmission Date: 20111010
  Serious: Yes (Hospitalization)
  Sender: FDA-Public Use
  Company Number: 2011MA005696

PATIENT
  Age: 28 Year
  Sex: Female

DRUGS (3)
  1. RIFAMPIN [Suspect]
     Indication: LEPROSY
  2. DAPSONE [Concomitant]
  3. CLOFAZIMINE [Concomitant]

REACTIONS (10)
  - DEHYDRATION [None]
  - AGRANULOCYTOSIS [None]
  - HEART RATE INCREASED [None]
  - ACUTE TONSILLITIS [None]
  - SYNCOPE [None]
  - LEUKOPENIA [None]
  - DYSPHAGIA [None]
  - NEUTROPENIA [None]
  - HAEMOLYTIC ANAEMIA [None]
  - HEADACHE [None]
